FAERS Safety Report 8307761-X (Version None)
Quarter: 2012Q2

REPORT INFORMATION
  Report Type: 
  Country: None (occurrence: None)
  Receive Date: 20120424
  Receipt Date: 20120420
  Transmission Date: 20120825
  Serious: Yes (Death)
  Sender: FDA-Public Use
  Company Number: PHHY2010BR85034

PATIENT
  Sex: Male

DRUGS (2)
  1. EXFORGE [Suspect]
     Dosage: (160/5 MG), UNK
  2. DIOVAN [Suspect]
     Dosage: UNK UKN, UNK

REACTIONS (1)
  - DEATH [None]
